FAERS Safety Report 21231027 (Version 1)
Quarter: 2022Q3

REPORT INFORMATION
  Report Type: Report from Study
  Country: TR (occurrence: TR)
  Receive Date: 20220819
  Receipt Date: 20220819
  Transmission Date: 20221026
  Serious: Yes (Death)
  Sender: FDA-Public Use
  Company Number: TR-ABBVIE-22K-161-4509791-00

PATIENT
  Sex: Female
  Weight: 86 kg

DRUGS (3)
  1. CARBIDOPA\LEVODOPA [Suspect]
     Active Substance: CARBIDOPA\LEVODOPA
     Indication: Parkinson^s disease
     Dosage: MORNING DOSE (ML): 6.00 CONTINUOUS DOSE (ML): 3.50 EXTRA DOSE (ML): 2.00
     Route: 050
     Dates: start: 20201113
  2. CARBIDOPA\LEVODOPA [Suspect]
     Active Substance: CARBIDOPA\LEVODOPA
  3. DOPADEX SR [Concomitant]
     Indication: Parkinson^s disease
     Route: 048
     Dates: start: 2019

REACTIONS (1)
  - Cardiac arrest [Fatal]
